FAERS Safety Report 8377590-X (Version None)
Quarter: 2012Q2

REPORT INFORMATION
  Report Type: 
  Country: None (occurrence: None)
  Receive Date: 20120522
  Receipt Date: 20120510
  Transmission Date: 20120825
  Serious: Yes (Other)
  Sender: FDA-Public Use
  Company Number: US-BRISTOL-MYERS SQUIBB COMPANY-16587289

PATIENT
  Age: 70 Year
  Sex: Male
  Weight: 88 kg

DRUGS (2)
  1. ERBITUX [Suspect]
     Indication: SQUAMOUS CELL CARCINOMA
  2. CISPLATIN [Suspect]
     Indication: SQUAMOUS CELL CARCINOMA

REACTIONS (8)
  - NEOPLASM MALIGNANT [None]
  - NEUROPATHY PERIPHERAL [None]
  - FULL BLOOD COUNT DECREASED [None]
  - PAIN [None]
  - SKIN LESION [None]
  - IMPAIRED HEALING [None]
  - EPISTAXIS [None]
  - HAEMORRHAGE [None]
